FAERS Safety Report 11801508 (Version 1)
Quarter: 2015Q4

REPORT INFORMATION
  Report Type: Spontaneous
  Country: US (occurrence: None)
  Receive Date: 20151203
  Receipt Date: 20151203
  Transmission Date: 20160305
  Serious: Yes (Disabling)
  Sender: FDA-Public Use
  Company Number: None

PATIENT
  Age: 77 Year
  Sex: Female
  Weight: 99.79 kg

DRUGS (14)
  1. DILTIAZAM [Concomitant]
  2. LOSARTIN [Concomitant]
     Active Substance: LOSARTAN
  3. ALPRAZOLAM. [Concomitant]
     Active Substance: ALPRAZOLAM
  4. OXYGEN. [Concomitant]
     Active Substance: OXYGEN
  5. PAROVETINE [Concomitant]
  6. ACETAMINOPHEN. [Concomitant]
     Active Substance: ACETAMINOPHEN
  7. SPIRIVA [Suspect]
     Active Substance: TIOTROPIUM BROMIDE MONOHYDRATE
     Route: 055
  8. CLARITIN [Concomitant]
     Active Substance: LORATADINE
  9. TUMS [Concomitant]
     Active Substance: CALCIUM CARBONATE
  10. ADVAIR DISKUS [Suspect]
     Active Substance: FLUTICASONE PROPIONATE\SALMETEROL XINAFOATE
     Indication: CHRONIC OBSTRUCTIVE PULMONARY DISEASE
     Dosage: 250/50 2 DAILY BY MOUTH
     Route: 048
     Dates: end: 20150620
  11. HEARING AID [Concomitant]
  12. WOFIRIN [Concomitant]
  13. FISH OIL [Concomitant]
     Active Substance: FISH OIL
  14. SALINE NASAL [Concomitant]
     Active Substance: SODIUM CHLORIDE

REACTIONS (3)
  - Ear disorder [None]
  - Deafness [None]
  - Hypoaesthesia [None]

NARRATIVE: CASE EVENT DATE: 20150620
